FAERS Safety Report 13233924 (Version 1)
Quarter: 2017Q1

REPORT INFORMATION
  Report Type: Spontaneous
  Country: US (occurrence: US)
  Receive Date: 20170215
  Receipt Date: 20170215
  Transmission Date: 20170428
  Serious: No
  Sender: FDA-Public Use
  Company Number: US-TORRENT-00001332

PATIENT
  Sex: Female

DRUGS (1)
  1. TOLTERODINE TARTRATE EXTENDED-RELEASE CAPSULES [Suspect]
     Active Substance: TOLTERODINE TARTRATE

REACTIONS (2)
  - Drug ineffective [Unknown]
  - Product substitution issue [Unknown]
